FAERS Safety Report 9317546 (Version 2)
Quarter: 2013Q2

REPORT INFORMATION
  Report Type: Report from Study
  Country: BR (occurrence: BR)
  Receive Date: 20130530
  Receipt Date: 20130612
  Transmission Date: 20140414
  Serious: Yes (Life-Threatening, Other)
  Sender: FDA-Public Use
  Company Number: BR-ROCHE-1125293

PATIENT
  Sex: Male
  Weight: 82 kg

DRUGS (12)
  1. PEGASYS [Suspect]
     Indication: HEPATITIS C
     Route: 042
  2. PEGASYS [Suspect]
     Dosage: 4 TABLETS PER DAY
     Route: 065
     Dates: start: 1998
  3. PEGASYS [Suspect]
     Route: 065
     Dates: end: 2007
  4. PEGASYS [Suspect]
     Dosage: DOSE REDUCED
     Route: 065
  5. RIBAVIRIN [Suspect]
     Indication: HEPATITIS C
     Dosage: 4 TABLETS PER DAY
     Route: 065
     Dates: start: 1998
  6. RIBAVIRIN [Suspect]
     Route: 065
     Dates: start: 2007
  7. RIBAVIRIN [Suspect]
     Dosage: DOSE REDUCED TO 3 TABLETS PER DAY
     Route: 065
  8. INTERFERON ALFA-2A [Suspect]
     Indication: HEPATITIS C
     Route: 065
  9. BOCEPREVIR [Suspect]
     Indication: HEPATITIS C
     Route: 065
  10. KALETRA [Concomitant]
     Indication: HIV INFECTION
     Route: 065
  11. LAMIVUDIN [Concomitant]
     Indication: HIV INFECTION
     Route: 065
  12. TENOFOVIR [Concomitant]
     Indication: HIV INFECTION
     Route: 065

REACTIONS (5)
  - Viral load increased [Unknown]
  - Drug ineffective [Unknown]
  - Platelet count decreased [Unknown]
  - Weight decreased [Unknown]
  - Hepatic cirrhosis [Unknown]
